FAERS Safety Report 20381846 (Version 1)
Quarter: 2022Q1

REPORT INFORMATION
  Report Type: Spontaneous
  Country: US (occurrence: US)
  Receive Date: 20220127
  Receipt Date: 20220127
  Transmission Date: 20220424
  Serious: No
  Sender: FDA-Public Use
  Company Number: US-JNJFOC-20220139793

PATIENT
  Sex: Female

DRUGS (1)
  1. WOMENS ROGAINE UNSCENTED [Suspect]
     Active Substance: MINOXIDIL
     Indication: Alopecia
     Dosage: PRODUCT DOSE: TOOK SOME AND RUBBED IT ONTO FOREARM
     Route: 061
     Dates: start: 202201

REACTIONS (3)
  - Drug hypersensitivity [Recovered/Resolved]
  - Product administered at inappropriate site [Unknown]
  - Off label use [Unknown]

NARRATIVE: CASE EVENT DATE: 20220101
